FAERS Safety Report 4700368-2 (Version None)
Quarter: 2005Q2

REPORT INFORMATION
  Report Type: 
  Country: None (occurrence: None)
  Receive Date: 20050207
  Receipt Date: 20050207
  Transmission Date: 20051028
  Serious: No
  Sender: FDA-Public Use
  Company Number: None

PATIENT
  Age: 53 Year
  Sex: Female
  Weight: 68.0396 kg

DRUGS (2)
  1. FIORICET [Suspect]
     Indication: HEADACHE
     Dosage: ONE PO Q 4-6 HR PRN
     Route: 048
  2. FIORICET [Suspect]
     Indication: NECK PAIN
     Dosage: ONE PO Q 4-6 HR PRN
     Route: 048

REACTIONS (3)
  - ABDOMINAL DISCOMFORT [None]
  - NAUSEA [None]
  - THERAPEUTIC RESPONSE UNEXPECTED WITH DRUG SUBSTITUTION [None]
